FAERS Safety Report 22614512 (Version 1)
Quarter: 2023Q2

REPORT INFORMATION
  Report Type: Report from Study
  Country: CA (occurrence: CA)
  Receive Date: 20230619
  Receipt Date: 20230619
  Transmission Date: 20230722
  Serious: Yes (Other)
  Sender: FDA-Public Use
  Company Number: CA-ABBVIE-5293069

PATIENT
  Sex: Male

DRUGS (1)
  1. SKYRIZI [Suspect]
     Active Substance: RISANKIZUMAB-RZAA
     Indication: Psoriasis
     Route: 058
     Dates: start: 20221130

REACTIONS (5)
  - Leukaemia [Unknown]
  - Bone cancer [Unknown]
  - Pulmonary oedema [Unknown]
  - Haemoglobin decreased [Unknown]
  - Blood glucose abnormal [Unknown]
